FAERS Safety Report 20474743 (Version 1)
Quarter: 2022Q1

REPORT INFORMATION
  Report Type: Spontaneous
  Country: US (occurrence: None)
  Receive Date: 20220214
  Receipt Date: 20220214
  Transmission Date: 20220423
  Serious: Yes (Other)
  Sender: FDA-Public Use
  Company Number: None

PATIENT
  Age: 33 Year
  Sex: Male
  Weight: 145.15 kg

DRUGS (2)
  1. BUPRENORPHINE\NALOXONE [Suspect]
     Active Substance: BUPRENORPHINE\NALOXONE
     Indication: Drug use disorder
     Dosage: OTHER FREQUENCY : BID ;?
     Route: 060
     Dates: start: 20181006, end: 20181010
  2. BUPRENORPHINE\NALOXONE [Suspect]
     Active Substance: BUPRENORPHINE\NALOXONE
     Dates: start: 20220211, end: 20220214

REACTIONS (6)
  - Headache [None]
  - Nausea [None]
  - Restlessness [None]
  - Somnolence [None]
  - Anxiety [None]
  - Manufacturing issue [None]

NARRATIVE: CASE EVENT DATE: 20220211
